FAERS Safety Report 26012810 (Version 1)
Quarter: 2025Q4

REPORT INFORMATION
  Report Type: Report from Study
  Country: US (occurrence: US)
  Receive Date: 20251107
  Receipt Date: 20251107
  Transmission Date: 20260118
  Serious: Yes (Other)
  Sender: MALLINCKRODT
  Company Number: US-MALLINCKRODT-MNK202506908

PATIENT
  Age: 52 Year
  Sex: Female

DRUGS (1)
  1. CORTICOTROPIN [Suspect]
     Active Substance: CORTICOTROPIN
     Indication: Multiple sclerosis
     Dosage: 80 UNITS
     Dates: start: 20250729

REACTIONS (2)
  - Multiple sclerosis relapse [Unknown]
  - Fall [Unknown]

NARRATIVE: CASE EVENT DATE: 20250101
